FAERS Safety Report 17123003 (Version 1)
Quarter: 2019Q4

REPORT INFORMATION
  Report Type: Spontaneous
  Country: CN (occurrence: CN)
  Receive Date: 20191206
  Receipt Date: 20191206
  Transmission Date: 20200122
  Serious: Yes (Hospitalization)
  Sender: FDA-Public Use
  Company Number: NVSC2019CN057085

PATIENT
  Age: 9 Year
  Sex: Male
  Weight: 22.4 kg

DRUGS (3)
  1. SANDIMMUN [Suspect]
     Active Substance: CYCLOSPORINE
     Indication: MYELODYSPLASTIC SYNDROME
     Dosage: 85 MG, QD
     Route: 065
     Dates: start: 20191102, end: 20191118
  2. CASPOFUNGIN [Suspect]
     Active Substance: CASPOFUNGIN
     Indication: MYELODYSPLASTIC SYNDROME
     Dosage: 47 MG, QD
     Route: 041
     Dates: start: 20191015, end: 20191120
  3. VANCOMYCIN [Concomitant]
     Active Substance: VANCOMYCIN
     Indication: MYELODYSPLASTIC SYNDROME
     Dosage: 310 MG, TID
     Route: 041
     Dates: start: 20191102, end: 20191113

REACTIONS (1)
  - Transaminases increased [Recovered/Resolved]

NARRATIVE: CASE EVENT DATE: 20191113
